FAERS Safety Report 12427509 (Version 1)
Quarter: 2016Q2

REPORT INFORMATION
  Report Type: Spontaneous
  Country: US (occurrence: US)
  Receive Date: 20160602
  Receipt Date: 20160602
  Transmission Date: 20160815
  Serious: Yes (Other)
  Sender: FDA-Public Use
  Company Number: US-SHIRE-US201606452

PATIENT
  Age: 9 Year
  Sex: Male

DRUGS (1)
  1. ELAPRASE [Suspect]
     Active Substance: IDURSULFASE
     Indication: MUCOPOLYSACCHARIDOSIS
     Dosage: 15 MG, 1X/WEEK
     Route: 041
     Dates: start: 20160421

REACTIONS (2)
  - Hypophagia [Not Recovered/Not Resolved]
  - Feeding tube complication [Not Recovered/Not Resolved]

NARRATIVE: CASE EVENT DATE: 20160523
